FAERS Safety Report 9792614 (Version 2)
Quarter: 2014Q2

REPORT INFORMATION
  Report Type: Spontaneous
  Country: US (occurrence: US)
  Receive Date: 20140102
  Receipt Date: 20140402
  Transmission Date: 20141212
  Serious: No
  Sender: FDA-Public Use
  Company Number: US-SA-2013SA101277

PATIENT
  Age: 50 Year
  Sex: Female

DRUGS (7)
  1. AUBAGIO [Suspect]
     Indication: MULTIPLE SCLEROSIS
     Route: 048
     Dates: start: 20130517
  2. BUPROPION [Concomitant]
     Indication: DEPRESSION
     Route: 048
     Dates: start: 2007
  3. HYDROCODONE [Concomitant]
     Indication: PAIN
     Route: 048
     Dates: start: 20130314
  4. TOPIRAMATE [Concomitant]
     Indication: HEADACHE
     Route: 048
     Dates: start: 2012
  5. METFORMIN [Concomitant]
     Indication: DIABETES MELLITUS
     Route: 048
     Dates: start: 2010
  6. OXYBUTYNIN [Concomitant]
     Indication: MICTURITION URGENCY
     Route: 048
     Dates: start: 20130314
  7. ADDERALL [Concomitant]
     Indication: FATIGUE
     Route: 048
     Dates: start: 20130716

REACTIONS (1)
  - Alopecia [Recovered/Resolved]
